FAERS Safety Report 11119618 (Version 1)
Quarter: 2015Q2

REPORT INFORMATION
  Report Type: Spontaneous
  Country: US (occurrence: None)
  Receive Date: 20150515
  Receipt Date: 20150515
  Transmission Date: 20150821
  Serious: Yes (Other)
  Sender: FDA-Public Use
  Company Number: None

PATIENT
  Age: 47 Year
  Sex: Female
  Weight: 72.58 kg

DRUGS (4)
  1. HRT [Concomitant]
     Active Substance: UNSPECIFIED INGREDIENT
  2. JUVEDERM ULTRA XC [Suspect]
     Active Substance: HYALURONIC ACID\LIDOCAINE HYDROCHLORIDE
     Indication: SKIN COSMETIC PROCEDURE
     Dates: start: 20141120, end: 20141120
  3. DULOXETINE [Concomitant]
     Active Substance: DULOXETINE
  4. MULTIVITAMIN [Concomitant]
     Active Substance: VITAMINS

REACTIONS (6)
  - Injection site pain [None]
  - Injection site vesicles [None]
  - Vascular occlusion [None]
  - Injection site discomfort [None]
  - Injection site erythema [None]
  - Injection related reaction [None]

NARRATIVE: CASE EVENT DATE: 20141120
